FAERS Safety Report 9123666 (Version 2)
Quarter: 2013Q1

REPORT INFORMATION
  Report Type: Spontaneous
  Country: FR (occurrence: FR)
  Receive Date: 20130227
  Receipt Date: 20130301
  Transmission Date: 20140127
  Serious: Yes (Other)
  Sender: FDA-Public Use
  Company Number: FR-PFIZER INC-2013067424

PATIENT
  Age: 31 Year
  Sex: Female

DRUGS (11)
  1. XANAX [Suspect]
     Dosage: UNK
     Route: 048
     Dates: start: 20130114, end: 20130114
  2. ATARAX [Suspect]
     Dosage: UNK
     Route: 048
     Dates: start: 20130114, end: 20130114
  3. ESTIMA [Suspect]
     Dosage: UNK
     Route: 048
     Dates: start: 20130114, end: 20130115
  4. PETHIDINE RENAUDIN [Suspect]
     Dosage: UNK
     Route: 030
     Dates: start: 20130114, end: 20130114
  5. ATROPINE [Suspect]
     Dosage: UNK
     Dates: start: 20130114, end: 20130114
  6. PROFENID [Suspect]
     Dosage: UNK
     Route: 054
     Dates: start: 20130114, end: 20130114
  7. PUREGON [Suspect]
     Indication: IN VITRO FERTILISATION
     Dosage: UNK
     Dates: start: 20130104, end: 20130112
  8. ORGALUTRAN [Suspect]
     Indication: IN VITRO FERTILISATION
     Dosage: UNK
     Route: 058
     Dates: start: 20130104, end: 20130112
  9. GONADOTROPHIN CHORIONIC [Suspect]
     Dosage: UNK
     Route: 030
     Dates: start: 20130112, end: 20130112
  10. SPECIAFOLDINE [Concomitant]
     Dosage: UNK
     Dates: start: 20121217
  11. DESOBEL [Concomitant]
     Dosage: UNK
     Dates: end: 20121230

REACTIONS (1)
  - Acute generalised exanthematous pustulosis [Recovered/Resolved]
